FAERS Safety Report 19771436 (Version 2)
Quarter: 2021Q3

REPORT INFORMATION
  Report Type: Report from Study
  Country: CA (occurrence: CA)
  Receive Date: 20210901
  Receipt Date: 20210907
  Transmission Date: 20211014
  Serious: Yes (Hospitalization)
  Sender: FDA-Public Use
  Company Number: CA-HLS-202108333

PATIENT
  Age: 66 Year
  Sex: Male

DRUGS (2)
  1. CLOZARIL [Suspect]
     Active Substance: CLOZAPINE
     Indication: PRODUCT USED FOR UNKNOWN INDICATION
     Route: 048
  2. CLOZARIL [Suspect]
     Active Substance: CLOZAPINE
     Indication: PRODUCT USED FOR UNKNOWN INDICATION
     Route: 048
     Dates: start: 20140707

REACTIONS (4)
  - Adverse drug reaction [Unknown]
  - Infection [Recovered/Resolved]
  - Somnolence [Unknown]
  - Endotracheal intubation [Recovered/Resolved]

NARRATIVE: CASE EVENT DATE: 20210814
